FAERS Safety Report 16096297 (Version 1)
Quarter: 2019Q1

REPORT INFORMATION
  Report Type: Spontaneous
  Country: US (occurrence: US)
  Receive Date: 20190320
  Receipt Date: 20190320
  Transmission Date: 20190418
  Serious: No
  Sender: FDA-Public Use
  Company Number: US-ACTELION-A-US2019-187029

PATIENT
  Age: 27 Year
  Sex: Female

DRUGS (2)
  1. VENTAVIS [Suspect]
     Active Substance: ILOPROST
     Indication: PULMONARY ARTERIAL HYPERTENSION
     Dosage: UNK
     Route: 055
  2. ADCIRCA [Concomitant]
     Active Substance: TADALAFIL

REACTIONS (8)
  - Feeling abnormal [Recovered/Resolved]
  - Headache [Recovered/Resolved]
  - Unevaluable event [Unknown]
  - Oxygen saturation decreased [Not Recovered/Not Resolved]
  - Walking distance test abnormal [Recovered/Resolved]
  - Drug ineffective [Recovered/Resolved]
  - Mental disorder [Not Recovered/Not Resolved]
  - Dizziness [Recovered/Resolved]

NARRATIVE: CASE EVENT DATE: 20140205
